FAERS Safety Report 4521953-7 (Version None)
Quarter: 2004Q4

REPORT INFORMATION
  Report Type: 
  Country: None (occurrence: None)
  Receive Date: 20041206
  Receipt Date: 20041110
  Transmission Date: 20050328
  Serious: Yes (Other)
  Sender: FDA-Public Use
  Company Number: 2004091430

PATIENT
  Age: 74 Year
  Sex: Female
  Weight: 55.3388 kg

DRUGS (4)
  1. BEXTRA [Suspect]
     Indication: OSTEOPOROSIS
     Dosage: 10 MG (10 MG, 1 IN 1 D), ORAL
     Route: 048
     Dates: start: 20040101, end: 20041101
  2. CONJUGATED ESTROGENS [Concomitant]
  3. LISINOPRIL [Concomitant]
  4. VITAMINS (VITAMINS) [Concomitant]

REACTIONS (12)
  - ABDOMINAL PAIN UPPER [None]
  - DRUG INEFFECTIVE [None]
  - EATING DISORDER [None]
  - FAECES DISCOLOURED [None]
  - GINGIVAL BLISTER [None]
  - HAEMATOCHEZIA [None]
  - HAEMORRHAGE [None]
  - HAEMORRHOIDS [None]
  - HYPERHIDROSIS [None]
  - NASOPHARYNGITIS [None]
  - ORAL MUCOSAL BLISTERING [None]
  - RESPIRATORY TRACT CONGESTION [None]
